FAERS Safety Report 5982935-1 (Version None)
Quarter: 2008Q4

REPORT INFORMATION
  Report Type: 
  Country: None (occurrence: None)
  Receive Date: 20081205
  Receipt Date: 20081205
  Transmission Date: 20090506
  Serious: Yes (Other)
  Sender: FDA-Public Use
  Company Number: None

PATIENT
  Sex: Female
  Weight: 63.5036 kg

DRUGS (2)
  1. AVELOX [Suspect]
     Indication: SINUSITIS
     Dosage: ONCE DAILY FOR 8D PO
     Route: 048
     Dates: start: 20081125, end: 20081202
  2. ALLEGRA D 24 HOUR [Suspect]
     Indication: SINUSITIS
     Dosage: ONCE DAILY FOR 8D PO
     Route: 048
     Dates: start: 20081125, end: 20081202

REACTIONS (6)
  - BODY TEMPERATURE INCREASED [None]
  - DIZZINESS [None]
  - FACE OEDEMA [None]
  - HYPERSENSITIVITY [None]
  - LOCALISED OEDEMA [None]
  - PALLOR [None]
